FAERS Safety Report 8958651 (Version 1)
Quarter: 2012Q4

REPORT INFORMATION
  Report Type: Spontaneous
  Country: US (occurrence: None)
  Receive Date: 20121206
  Receipt Date: 20121206
  Transmission Date: 20130627
  Serious: Yes (Other)
  Sender: FDA-Public Use
  Company Number: None

PATIENT
  Age: 68 Year
  Sex: Female
  Weight: 71.67 kg

DRUGS (1)
  1. RISEDRONATE SODIUM [Suspect]
     Indication: OSTEOPENIA
     Dosage: 1-35 mg tablet weekly po
     Route: 048
     Dates: start: 20121202, end: 20121202

REACTIONS (4)
  - Arthralgia [None]
  - Myalgia [None]
  - Pain in extremity [None]
  - Pain in extremity [None]
